FAERS Safety Report 7813175-9 (Version None)
Quarter: 2011Q4

REPORT INFORMATION
  Report Type: 
  Country: None (occurrence: None)
  Receive Date: 20111013
  Receipt Date: 20111012
  Transmission Date: 20120403
  Serious: Yes (Hospitalization, Other)
  Sender: FDA-Public Use
  Company Number: US-ABBOTT-11P-163-0862032-00

PATIENT
  Age: 52 Year
  Sex: Male

DRUGS (4)
  1. HUMIRA [Suspect]
     Indication: ANKYLOSING SPONDYLITIS
     Dates: start: 20110101, end: 20110801
  2. GABAPENTIN [Concomitant]
     Indication: PRODUCT USED FOR UNKNOWN INDICATION
  3. AMITRIPTYLINE HCL [Concomitant]
     Indication: PRODUCT USED FOR UNKNOWN INDICATION
  4. ATACAND [Concomitant]
     Indication: HYPERTENSION

REACTIONS (8)
  - CONCUSSION [None]
  - HERNIA [None]
  - HEAD INJURY [None]
  - CHEST PAIN [None]
  - HEADACHE [None]
  - PROSTATIC SPECIFIC ANTIGEN INCREASED [None]
  - NECK PAIN [None]
  - PROSTATE CANCER [None]
